FAERS Safety Report 11319285 (Version 7)
Quarter: 2018Q3

REPORT INFORMATION
  Report Type: Spontaneous
  Country: US (occurrence: US)
  Receive Date: 20150729
  Receipt Date: 20180709
  Transmission Date: 20181010
  Serious: No
  Sender: FDA-Public Use
  Company Number: US-ACTELION PHARMACEUTICALS US, INC.-A-US2015-120461

PATIENT
  Age: 49 Year
  Sex: Female
  Weight: 55.78 kg

DRUGS (6)
  1. VELETRI [Suspect]
     Active Substance: EPOPROSTENOL
     Dosage: 38.5 NG/KG, PER MIN
     Route: 042
     Dates: start: 20151022
  2. VELETRI [Suspect]
     Active Substance: EPOPROSTENOL
     Dosage: 40 NG/KG, PER MIN
     Route: 042
  3. LOVENOX [Concomitant]
     Active Substance: ENOXAPARIN SODIUM
  4. OPSUMIT [Suspect]
     Active Substance: MACITENTAN
     Indication: PULMONARY ARTERIAL HYPERTENSION
     Dosage: 10 MG, UNK
     Route: 048
     Dates: start: 20150122
  5. VELETRI [Suspect]
     Active Substance: EPOPROSTENOL
     Indication: PULMONARY ARTERIAL HYPERTENSION
     Dosage: 38.5 NG/KG, PER MIN
     Route: 042
     Dates: start: 20150625
  6. SILDENAFIL. [Concomitant]
     Active Substance: SILDENAFIL

REACTIONS (12)
  - Diarrhoea [Unknown]
  - Dizziness [Unknown]
  - Pain in jaw [Unknown]
  - Flushing [Unknown]
  - Erythema [Unknown]
  - Nausea [Unknown]
  - Seasonal allergy [Unknown]
  - Pain in extremity [Unknown]
  - Dyspnoea exertional [Unknown]
  - Headache [Unknown]
  - Fatigue [Unknown]
  - Gastroenteritis viral [Unknown]

NARRATIVE: CASE EVENT DATE: 20150630
